FAERS Safety Report 17911374 (Version 1)
Quarter: 2020Q2

REPORT INFORMATION
  Report Type: Spontaneous
  Country: DE (occurrence: DE)
  Receive Date: 20200618
  Receipt Date: 20200618
  Transmission Date: 20200714
  Serious: Yes (Hospitalization)
  Sender: FDA-Public Use
  Company Number: DE-TORRENT-00017764

PATIENT
  Age: 74 Year
  Sex: Female

DRUGS (8)
  1. ACETYLSALICYLIC ACID [Suspect]
     Active Substance: ASPIRIN
     Indication: PRODUCT USED FOR UNKNOWN INDICATION
     Dosage: 100 MG, 1-0-0-0
     Route: 048
  2. OMEPRAZOL [Concomitant]
     Active Substance: OMEPRAZOLE
     Indication: PRODUCT USED FOR UNKNOWN INDICATION
     Dosage: 40 MG, 1-0-0-0
     Route: 048
  3. LEVOTHYROXIN-SODIUM [Concomitant]
     Indication: PRODUCT USED FOR UNKNOWN INDICATION
     Dosage: 12.5 G, 1-0-0-0
     Route: 048
  4. HYDROCHLOROTHIAZID/METOPROLOL [Concomitant]
     Indication: PRODUCT USED FOR UNKNOWN INDICATION
     Dosage: 12.5/100 MG, 1-0-0-0
     Route: 048
  5. EUTHYROX [Concomitant]
     Active Substance: LEVOTHYROXINE SODIUM
     Indication: PRODUCT USED FOR UNKNOWN INDICATION
     Dosage: 50 G, 1-0-0-0
     Route: 048
  6. DEKRISTOL [Concomitant]
     Active Substance: CHOLECALCIFEROL
     Indication: PRODUCT USED FOR UNKNOWN INDICATION
     Dosage: 20.000 IE, 1X
     Route: 048
  7. DULOXETINE. [Suspect]
     Active Substance: DULOXETINE
     Indication: PRODUCT USED FOR UNKNOWN INDICATION
     Dosage: 20 MG, 2-0-1-0
     Route: 048
  8. CANDESARTAN. [Concomitant]
     Active Substance: CANDESARTAN
     Indication: PRODUCT USED FOR UNKNOWN INDICATION
     Dosage: 16 MG, 0-1-0-0
     Route: 048

REACTIONS (3)
  - Condition aggravated [Unknown]
  - Haematuria [Unknown]
  - Fall [Unknown]
